FAERS Safety Report 15767081 (Version 3)
Quarter: 2019Q2

REPORT INFORMATION
  Report Type: Spontaneous
  Country: US (occurrence: US)
  Receive Date: 20181227
  Receipt Date: 20190422
  Transmission Date: 20190711
  Serious: Yes (Other)
  Sender: FDA-Public Use
  Company Number: US-BRISTOL-MYERS SQUIBB COMPANY-BMS-2018-120031

PATIENT
  Age: 73 Year
  Sex: Female
  Weight: 54.42 kg

DRUGS (1)
  1. ORENCIA [Suspect]
     Active Substance: ABATACEPT
     Indication: RHEUMATOID ARTHRITIS
     Dosage: 125 MG, QWK
     Route: 058
     Dates: start: 201709

REACTIONS (6)
  - Pain [Unknown]
  - Product dose omission [Unknown]
  - Malaise [Unknown]
  - Hypertension [Unknown]
  - Sinusitis [Unknown]
  - Arthropathy [Unknown]

NARRATIVE: CASE EVENT DATE: 20181217
